FAERS Safety Report 7509746-X (Version None)
Quarter: 2011Q2

REPORT INFORMATION
  Report Type: 
  Country: None (occurrence: None)
  Receive Date: 20110527
  Receipt Date: 20110518
  Transmission Date: 20111010
  Serious: Yes (Other)
  Sender: FDA-Public Use
  Company Number: RU-ASTRAZENECA-2011SE31056

PATIENT
  Age: 27 Year
  Sex: Female
  Weight: 59 kg

DRUGS (3)
  1. SYMBICORT [Suspect]
     Indication: ASTHMA
     Dosage: 160/4.5 TWO TIMES A DAY
     Route: 055
     Dates: start: 20110429
  2. BERODUAL [Concomitant]
  3. SYMBICORT [Suspect]
     Dosage: 80/4.5 ONCE A DAY
     Route: 055
     Dates: start: 20110507

REACTIONS (2)
  - TREMOR [None]
  - ANXIETY [None]
